FAERS Safety Report 20613710 (Version 2)
Quarter: 2022Q1

REPORT INFORMATION
  Report Type: Report from Study
  Country: BR (occurrence: BR)
  Receive Date: 20220319
  Receipt Date: 20220330
  Transmission Date: 20220423
  Serious: Yes (Other)
  Sender: FDA-Public Use
  Company Number: BR-NOVARTISPH-NVSC2022BR060429

PATIENT
  Age: 85 Year
  Sex: Female

DRUGS (4)
  1. TASIGNA [Suspect]
     Active Substance: NILOTINIB
     Indication: Chronic myeloid leukaemia
     Dosage: 200 MG (TWO TABLETS) (4 OR 5 YEARS AGO)
     Route: 065
  2. TASIGNA [Suspect]
     Active Substance: NILOTINIB
     Indication: Spinal cord oedema
  3. LOSARTAN [Suspect]
     Active Substance: LOSARTAN
     Indication: Hypertension
     Dosage: 1 DOSAGE FORM, Q12H (STARTED MANY YEARS AGO)
     Route: 048
     Dates: end: 202201
  4. LOSARTAN [Suspect]
     Active Substance: LOSARTAN
     Dosage: 1 DOSAGE FORM, Q12H ((BUT DID NOT USES EVERYDAY, USES NOW AND THEN))
     Route: 048
     Dates: start: 202201

REACTIONS (9)
  - Cataract [Not Recovered/Not Resolved]
  - Lid sulcus deepened [Not Recovered/Not Resolved]
  - Lacrimation increased [Not Recovered/Not Resolved]
  - Vision blurred [Not Recovered/Not Resolved]
  - Visual impairment [Not Recovered/Not Resolved]
  - Blood cholesterol increased [Not Recovered/Not Resolved]
  - Blood pressure increased [Recovered/Resolved]
  - Blood potassium increased [Not Recovered/Not Resolved]
  - Arthralgia [Not Recovered/Not Resolved]

NARRATIVE: CASE EVENT DATE: 20211001
